FAERS Safety Report 9286269 (Version 1)
Quarter: 2013Q2

REPORT INFORMATION
  Report Type: Spontaneous
  Country: CH (occurrence: CH)
  Receive Date: 20130513
  Receipt Date: 20130513
  Transmission Date: 20140414
  Serious: Yes (Hospitalization)
  Sender: FDA-Public Use
  Company Number: CH-BAYER-2013-051581

PATIENT
  Age: 87 Year
  Sex: Male
  Weight: 77 kg

DRUGS (10)
  1. ASPIRIN CARDIO [Suspect]
     Indication: CARDIAC DISORDER
     Dosage: 100 MG, QD
     Route: 048
     Dates: end: 20130324
  2. MARCOUMAR [Interacting]
     Indication: PULMONARY EMBOLISM
     Dosage: 3 MG
     Route: 048
     Dates: start: 20130211, end: 20130324
  3. ARIXTRA [Interacting]
     Indication: PULMONARY EMBOLISM
     Dosage: 75 MG, QD
     Route: 058
     Dates: start: 20130121, end: 20130320
  4. TOREM [Concomitant]
     Dosage: DAILY DOSE 10 MG PER 1 DAY
     Route: 048
     Dates: start: 20130327, end: 20130327
  5. PRADIF T [Concomitant]
     Dosage: 400 UG PER 1 DAY
     Route: 048
  6. SELIPRAN [Concomitant]
     Dosage: 20 MG, UNK
     Dates: end: 20130324
  7. DIAMICRON [Concomitant]
     Dosage: 60 MG, UNK
     Route: 048
     Dates: end: 20130324
  8. SINQUAN [Concomitant]
     Dosage: 10 MG, PER 1DAY
  9. SYMBICORT [Concomitant]
     Dosage: UNK
     Route: 045
  10. INFLAMAC [Concomitant]
     Dosage: UNK UNK, TID
     Route: 061
     Dates: start: 20130320, end: 20130322

REACTIONS (5)
  - Muscle haemorrhage [Recovering/Resolving]
  - Haematoma [Recovering/Resolving]
  - Anaemia [Recovering/Resolving]
  - Dyspnoea [Unknown]
  - Renal failure chronic [Recovering/Resolving]
